FAERS Safety Report 5407274-9 (Version None)
Quarter: 2007Q3

REPORT INFORMATION
  Report Type: 
  Country: None (occurrence: None)
  Receive Date: 20070807
  Receipt Date: 20070726
  Transmission Date: 20080115
  Serious: Yes (Hospitalization)
  Sender: FDA-Public Use
  Company Number: JP-SANOFI-SYNTHELABO-A01200708103

PATIENT
  Age: 779 Month
  Sex: Male
  Weight: 77 kg

DRUGS (15)
  1. SOL MEDROL [Concomitant]
     Indication: INTERSTITIAL LUNG DISEASE
     Dosage: 4 UNK
     Route: 042
     Dates: start: 20070618, end: 20070620
  2. BAKTAR [Concomitant]
     Indication: INFECTION
     Dosage: 4 G
     Route: 065
     Dates: start: 20070620
  3. MUCOFILIN [Concomitant]
     Indication: INTERSTITIAL LUNG DISEASE
     Dosage: 3 UNK
     Route: 025
     Dates: start: 20070718
  4. ALFAROL [Concomitant]
     Indication: OSTEOPOROSIS
     Dosage: 5 MCG
     Route: 048
     Dates: start: 20070618
  5. FAMOTIDINE [Concomitant]
     Indication: GASTRITIS
     Route: 048
     Dates: start: 20070618
  6. MYSLEE [Suspect]
     Indication: DRUG USE FOR UNKNOWN INDICATION
     Dosage: 5 MG
     Route: 048
  7. MYSLEE [Suspect]
     Dosage: UNK
     Route: 048
  8. MYSLEE [Suspect]
     Dosage: 5 MG
     Route: 048
     Dates: start: 20070702, end: 20070704
  9. MYSLEE [Suspect]
     Dosage: 10 MG
     Route: 048
     Dates: start: 20070705, end: 20070705
  10. PREDONINE [Concomitant]
     Indication: INTERSTITIAL LUNG DISEASE
     Route: 048
     Dates: start: 20070621, end: 20070626
  11. PREDONINE [Concomitant]
     Route: 048
     Dates: start: 20070627, end: 20070703
  12. PREDONINE [Concomitant]
     Dosage: 30 MG
     Route: 048
     Dates: start: 20070704, end: 20070710
  13. PREDONINE [Concomitant]
     Route: 048
     Dates: start: 20070711, end: 20070717
  14. PREDONINE [Concomitant]
     Route: 048
     Dates: start: 20070718, end: 20070724
  15. PREDONINE [Concomitant]
     Route: 048
     Dates: start: 20070725

REACTIONS (5)
  - AMNESIA [None]
  - FALL [None]
  - LACERATION [None]
  - SOMNAMBULISM [None]
  - SPINAL FRACTURE [None]
